FAERS Safety Report 5211164-4 (Version None)
Quarter: 2006Q4

REPORT INFORMATION
  Report Type: 
  Country: None (occurrence: None)
  Receive Date: 20061130
  Receipt Date: 20061025
  Transmission Date: 20070319
  Serious: Yes (Disabling, Other)
  Sender: FDA-Public Use
  Company Number: WAES 0510USA08720

PATIENT
  Age: 68 Year
  Sex: Female
  Weight: 135.1719 kg

DRUGS (19)
  1. FOSAMAX [Suspect]
     Dosage: 70 MG/WKY/PO
     Route: 048
     Dates: end: 20050101
  2. ACTOS [Concomitant]
  3. DEMADEX [Concomitant]
  4. HUMULIN 70/30 [Concomitant]
  5. LEXAPRO [Concomitant]
  6. LIPITOR [Concomitant]
  7. MIRAPEX [Concomitant]
  8. OCUVITE LUTEIN [Concomitant]
  9. PROTONIX [Concomitant]
  10. ULTRAM [Concomitant]
  11. THERAPY UNSPECIFIED [Concomitant]
  12. ASPIRIN [Concomitant]
  13. CALCIUM [Concomitant]
  14. LYSINE [Concomitant]
  15. MAGNESIUM [Concomitant]
  16. NIACIN [Concomitant]
  17. NITROGLYCERIN [Concomitant]
  18. SPIRONOLACTONE [Concomitant]
  19. VITAMIN E [Concomitant]

REACTIONS (2)
  - OSTEOMYELITIS [None]
  - SKIN LESION [None]
